FAERS Safety Report 12992268 (Version 2)
Quarter: 2016Q4

REPORT INFORMATION
  Report Type: Spontaneous
  Country: IT (occurrence: IT)
  Receive Date: 20161201
  Receipt Date: 20161207
  Transmission Date: 20170207
  Serious: Yes (Other)
  Sender: FDA-Public Use
  Company Number: IT-ROCHE-1832096

PATIENT
  Age: 52 Year
  Sex: Female
  Weight: 54 kg

DRUGS (3)
  1. PACLITAXEL. [Interacting]
     Active Substance: PACLITAXEL
     Indication: FALLOPIAN TUBE NEOPLASM
     Dosage: 6 MG/ML -INFUSION^ 5 X 300 MG/50 ML GLASS VIALS
     Route: 042
     Dates: start: 20160726
  2. AVASTIN [Suspect]
     Active Substance: BEVACIZUMAB
     Indication: FALLOPIAN TUBE NEOPLASM
     Dosage: 1 X 100 MG VIAL
     Route: 042
     Dates: start: 20160726
  3. CARBOPLATIN. [Interacting]
     Active Substance: CARBOPLATIN
     Indication: FALLOPIAN TUBE NEOPLASM
     Dosage: 1 BOTTLE IV 45 ML 10 MG/ML
     Route: 042
     Dates: start: 20160726

REACTIONS (3)
  - Neutropenia [Recovered/Resolved]
  - Drug interaction [Unknown]
  - Leukopenia [Recovered/Resolved]

NARRATIVE: CASE EVENT DATE: 20160905
